FAERS Safety Report 23773910 (Version 1)
Quarter: 2024Q2

REPORT INFORMATION
  Report Type: Spontaneous
  Country: US (occurrence: None)
  Receive Date: 20240422
  Receipt Date: 20240422
  Transmission Date: 20240716
  Serious: No
  Sender: FDA-Public Use
  Company Number: None

PATIENT
  Age: 0 Year
  Sex: Female

DRUGS (1)
  1. VIGABATRIN [Suspect]
     Active Substance: VIGABATRIN
     Indication: Infantile spasms
     Dosage: 500MG QD ORAL?
     Route: 048
     Dates: start: 20240325

REACTIONS (4)
  - Tremor [None]
  - Irritability [None]
  - Tachycardia [None]
  - Therapy change [None]

NARRATIVE: CASE EVENT DATE: 20240404
